FAERS Safety Report 6024664-4 (Version None)
Quarter: 2008Q4

REPORT INFORMATION
  Report Type: 
  Country: None (occurrence: None)
  Receive Date: 20081230
  Receipt Date: 20081230
  Transmission Date: 20090506
  Serious: Yes (Other)
  Sender: FDA-Public Use
  Company Number: None

PATIENT
  Age: 59 Year
  Sex: Male
  Weight: 73.4827 kg

DRUGS (3)
  1. BUPROPION HCL [Suspect]
     Indication: DEPRESSION
     Dosage: 150 MG EVERY 12 HRS PO
     Route: 048
     Dates: start: 20040101, end: 20081201
  2. ALPRAZOLAM [Concomitant]
  3. WELLBUTRIN SR [Suspect]

REACTIONS (6)
  - ANXIETY [None]
  - DYSPHEMIA [None]
  - INSOMNIA [None]
  - PALPITATIONS [None]
  - PRODUCT QUALITY ISSUE [None]
  - TREMOR [None]
